FAERS Safety Report 6881384-1 (Version None)
Quarter: 2010Q3

REPORT INFORMATION
  Report Type: 
  Country: None (occurrence: None)
  Receive Date: 20100728
  Receipt Date: 20100728
  Transmission Date: 20110219
  Serious: Yes (Hospitalization)
  Sender: FDA-Public Use
  Company Number: None

PATIENT
  Sex: Female
  Weight: 63.2 kg

DRUGS (6)
  1. CYCLOPHOSPHAMIDE [Suspect]
     Dosage: 1610 MG
  2. CYTARABINE [Suspect]
     Dosage: 1936 MG
  3. MERCAPTOPURINE [Suspect]
     Dosage: 2800 MG
  4. METHOTREXATE [Suspect]
     Dosage: 30 MG
  5. PEG-L- ASPARAGINASE (K -H) [Suspect]
     Dosage: 8050 MG
  6. VINCRISTINE SULFATE [Suspect]
     Dosage: 8 MG

REACTIONS (6)
  - CHILLS [None]
  - DECREASED APPETITE [None]
  - FATIGUE [None]
  - FEBRILE NEUTROPENIA [None]
  - LOWER RESPIRATORY TRACT INFECTION [None]
  - NAUSEA [None]
